FAERS Safety Report 19847570 (Version 1)
Quarter: 2021Q3

REPORT INFORMATION
  Report Type: Spontaneous
  Country: AR (occurrence: AR)
  Receive Date: 20210917
  Receipt Date: 20210917
  Transmission Date: 20211014
  Serious: Yes (Hospitalization)
  Sender: FDA-Public Use
  Company Number: AR-ASTRAZENECA-2021A726535

PATIENT
  Sex: Male

DRUGS (10)
  1. VALSARTAN. [Concomitant]
     Active Substance: VALSARTAN
  2. LEVETIRACETAM. [Concomitant]
     Active Substance: LEVETIRACETAM
  3. OMEPRAZOL [Concomitant]
     Active Substance: OMEPRAZOLE
  4. CLONAZEPAN [Concomitant]
     Active Substance: CLONAZEPAM
  5. BISOPROLOL [Concomitant]
     Active Substance: BISOPROLOL
  6. RIVAROXABAN [Concomitant]
     Active Substance: RIVAROXABAN
  7. ELIQUIS [Suspect]
     Active Substance: APIXABAN
     Route: 048
  8. ASPIRINE [Concomitant]
     Active Substance: ASPIRIN
  9. QUETIAPINE FUMARATE. [Suspect]
     Active Substance: QUETIAPINE FUMARATE
     Dosage: 12.5MG UNKNOWN
     Route: 048
  10. VALPROATE MAGNESIUM [Concomitant]
     Active Substance: VALPROATE MAGNESIUM

REACTIONS (3)
  - Syncope [Unknown]
  - Atrial fibrillation [Unknown]
  - Potentiating drug interaction [Unknown]

NARRATIVE: CASE EVENT DATE: 20210726
